FAERS Safety Report 6351228-5 (Version None)
Quarter: 2009Q3

REPORT INFORMATION
  Report Type: 
  Country: None (occurrence: None)
  Receive Date: 20090912
  Receipt Date: 20090622
  Transmission Date: 20100115
  Serious: No
  Sender: FDA-Public Use
  Company Number: US-ABBOTT-07P-163-0376151-00

PATIENT
  Sex: Female
  Weight: 74.456 kg

DRUGS (5)
  1. HUMIRA [Suspect]
     Indication: CROHN'S DISEASE
     Route: 058
     Dates: start: 20070517
  2. CLOMIPRAMINE [Concomitant]
     Indication: OBSESSIVE-COMPULSIVE DISORDER
     Route: 048
  3. BUSPIRONE HCL [Concomitant]
     Indication: OBSESSIVE-COMPULSIVE DISORDER
     Route: 048
  4. LORAZEPAM [Concomitant]
     Indication: OBSESSIVE-COMPULSIVE DISORDER
     Route: 048
  5. ZIPRASIDONE HYDROCHLORIDE [Concomitant]
     Indication: OBSESSIVE-COMPULSIVE DISORDER
     Route: 048

REACTIONS (6)
  - ACCIDENTAL NEEDLE STICK [None]
  - FUNGAL INFECTION [None]
  - INCORRECT DOSE ADMINISTERED [None]
  - INJECTION SITE ERYTHEMA [None]
  - INJECTION SITE REACTION [None]
  - INJECTION SITE SWELLING [None]
